FAERS Safety Report 8850132 (Version 1)
Quarter: 2012Q4

REPORT INFORMATION
  Report Type: 
  Country: DE (occurrence: DE)
  Receive Date: 20121019
  Receipt Date: 20121019
  Transmission Date: 20130627
  Serious: Yes (Other)
  Sender: FDA-Public Use
  Company Number: DE-PFIZER INC-2012257371

PATIENT
  Sex: Female
  Weight: 120 kg

DRUGS (1)
  1. NORVASC [Suspect]

REACTIONS (6)
  - Parkinson^s disease [Unknown]
  - Oedema [Unknown]
  - Gait disturbance [Unknown]
  - Dizziness [Unknown]
  - Depression [Unknown]
  - Autonomic nervous system imbalance [Unknown]
